FAERS Safety Report 8792924 (Version 3)
Quarter: 2012Q4

REPORT INFORMATION
  Report Type: 
  Country: US (occurrence: US)
  Receive Date: 20120918
  Receipt Date: 20121119
  Transmission Date: 20130627
  Serious: No
  Sender: FDA-Public Use
  Company Number: US-PFIZER INC-2012225947

PATIENT
  Age: 48 Year
  Sex: Female
  Weight: 105.22 kg

DRUGS (4)
  1. ZOLOFT [Suspect]
     Indication: DEPRESSION
     Dosage: 100 mg, 2x/day
     Route: 048
     Dates: end: 201211
  2. WELLBUTRIN [Suspect]
     Indication: DEPRESSION
     Dosage: UNK, 2x/day
     Dates: end: 201208
  3. ADDERALL [Suspect]
     Indication: DEPRESSION
     Dosage: UNK
  4. BUPROPION [Concomitant]
     Dosage: UNK

REACTIONS (5)
  - Drug ineffective [Not Recovered/Not Resolved]
  - Therapeutic response unexpected [Unknown]
  - Headache [Not Recovered/Not Resolved]
  - Nervousness [Not Recovered/Not Resolved]
  - Feeling abnormal [Not Recovered/Not Resolved]
